FAERS Safety Report 5538331-4 (Version None)
Quarter: 2007Q4

REPORT INFORMATION
  Report Type: 
  Country: None (occurrence: None)
  Receive Date: 20071205
  Receipt Date: 20071126
  Transmission Date: 20080405
  Serious: Yes (Hospitalization, Other)
  Sender: FDA-Public Use
  Company Number: TPA2007A02407

PATIENT
  Age: 72 Year
  Sex: Male
  Weight: 83.0083 kg

DRUGS (8)
  1. ACTOS [Suspect]
     Indication: TYPE 2 DIABETES MELLITUS
     Dosage: 45 MG, 1 IN 1 D, PER ORAL;  ) 30 MG, 1 IN 1 D, PER ORAL
     Route: 048
     Dates: start: 20031126, end: 20071101
  2. ACTOS [Suspect]
     Indication: TYPE 2 DIABETES MELLITUS
     Dosage: 45 MG, 1 IN 1 D, PER ORAL;  ) 30 MG, 1 IN 1 D, PER ORAL
     Route: 048
     Dates: start: 20071101
  3. JANUVIA (ANTI-DIABETICS) [Concomitant]
  4. QUINAPRIL HCL [Concomitant]
  5. HYTRIN [Concomitant]
  6. SYNTHROID [Concomitant]
  7. LIPITOR [Concomitant]
  8. PLAVIX [Concomitant]

REACTIONS (4)
  - ARTERIAL OCCLUSIVE DISEASE [None]
  - CHOLELITHIASIS [None]
  - JOINT SWELLING [None]
  - PANCREATITIS [None]
